FAERS Safety Report 5104729-1 (Version None)
Quarter: 2006Q3

REPORT INFORMATION
  Report Type: 
  Country: None (occurrence: None)
  Receive Date: 20060731
  Receipt Date: 20050607
  Transmission Date: 20061208
  Serious: Yes (Other)
  Sender: FDA-Public Use
  Company Number: US-JNJFOC-20050106202

PATIENT
  Age: 45 Year
  Sex: Male
  Weight: 79.3795 kg

DRUGS (6)
  1. RISPERDAL [Suspect]
     Indication: IMPULSE-CONTROL DISORDER
     Dosage: 3 MG, IN 1 DAY,
     Dates: start: 19990101
  2. LAMOTRIGINE [Concomitant]
  3. DEPAKOTE [Concomitant]
  4. ZOLOFT [Concomitant]
  5. ISONIAZID [Concomitant]
  6. NEURONTIN [Concomitant]

REACTIONS (4)
  - HAEMATOCRIT DECREASED [None]
  - HAEMOGLOBIN DECREASED [None]
  - RED BLOOD CELL COUNT DECREASED [None]
  - WHITE BLOOD CELL COUNT DECREASED [None]
